FAERS Safety Report 7396186 (Version 3)
Quarter: 2018Q1

REPORT INFORMATION
  Report Type: Spontaneous
  Country: GB (occurrence: GB)
  Receive Date: 20100521
  Receipt Date: 20180227
  Transmission Date: 20180509
  Serious: Yes (Life-Threatening, Hospitalization, Disabling)
  Sender: FDA-Public Use
  Company Number: GXKR2009GB11821

PATIENT
  Age: 63 Year
  Sex: Male
  Weight: 80 kg

DRUGS (43)
  1. LOSEC [Suspect]
     Active Substance: OMEPRAZOLE
     Dosage: UNK
     Route: 065
     Dates: start: 2006, end: 200605
  2. OMEPRAZOLE. [Suspect]
     Active Substance: OMEPRAZOLE
     Route: 042
  3. OMEPRAZOLE. [Suspect]
     Active Substance: OMEPRAZOLE
     Route: 042
  4. OMEPRAZOLE. [Suspect]
     Active Substance: OMEPRAZOLE
     Route: 042
  5. OMEPRAZOLE. [Suspect]
     Active Substance: OMEPRAZOLE
     Route: 042
  6. OMEPRAZOLE. [Suspect]
     Active Substance: OMEPRAZOLE
     Route: 042
  7. OMEPRAZOLE. [Suspect]
     Active Substance: OMEPRAZOLE
     Route: 042
  8. OMEPRAZOLE. [Suspect]
     Active Substance: OMEPRAZOLE
     Route: 042
  9. LANSOPRAZOLE. [Suspect]
     Active Substance: LANSOPRAZOLE
     Indication: PRODUCT USED FOR UNKNOWN INDICATION
     Route: 065
     Dates: start: 20060725, end: 20060808
  10. LOSEC [Suspect]
     Active Substance: OMEPRAZOLE
     Indication: GASTROOESOPHAGEAL REFLUX DISEASE
     Dosage: 40 MG, UNK
     Route: 048
     Dates: start: 2002, end: 200605
  11. OMEPRAZOLE. [Suspect]
     Active Substance: OMEPRAZOLE
     Route: 042
  12. OMEPRAZOLE. [Suspect]
     Active Substance: OMEPRAZOLE
     Route: 042
  13. OMEPRAZOLE. [Suspect]
     Active Substance: OMEPRAZOLE
     Route: 042
  14. OMEPRAZOLE. [Suspect]
     Active Substance: OMEPRAZOLE
     Route: 042
  15. OMEPRAZOLE. [Suspect]
     Active Substance: OMEPRAZOLE
     Indication: PRODUCT USED FOR UNKNOWN INDICATION
     Route: 042
     Dates: start: 20050505, end: 20060617
  16. OMEPRAZOLE. [Suspect]
     Active Substance: OMEPRAZOLE
     Route: 042
  17. OMEPRAZOLE. [Suspect]
     Active Substance: OMEPRAZOLE
     Route: 042
  18. OMEPRAZOLE. [Suspect]
     Active Substance: OMEPRAZOLE
     Route: 042
  19. OMEPRAZOLE. [Suspect]
     Active Substance: OMEPRAZOLE
     Route: 042
  20. OMEPRAZOLE. [Suspect]
     Active Substance: OMEPRAZOLE
     Route: 042
  21. OMEPRAZOLE. [Suspect]
     Active Substance: OMEPRAZOLE
     Route: 042
  22. OMEPRAZOLE. [Suspect]
     Active Substance: OMEPRAZOLE
     Route: 042
  23. OMEPRAZOLE. [Suspect]
     Active Substance: OMEPRAZOLE
     Route: 042
  24. OMEPRAZOLE. [Suspect]
     Active Substance: OMEPRAZOLE
     Route: 048
  25. OMEPRAZOLE. [Suspect]
     Active Substance: OMEPRAZOLE
     Route: 042
  26. OMEPRAZOLE. [Suspect]
     Active Substance: OMEPRAZOLE
     Route: 042
  27. LOSEC [Suspect]
     Active Substance: OMEPRAZOLE
     Indication: GASTROOESOPHAGEAL REFLUX DISEASE
     Dosage: UNK
     Route: 048
     Dates: start: 200606
  28. OMEPRAZOLE. [Suspect]
     Active Substance: OMEPRAZOLE
     Route: 048
  29. OMEPRAZOLE. [Suspect]
     Active Substance: OMEPRAZOLE
     Route: 042
  30. OMEPRAZOLE. [Suspect]
     Active Substance: OMEPRAZOLE
     Route: 042
  31. OMEPRAZOLE. [Suspect]
     Active Substance: OMEPRAZOLE
     Route: 042
  32. OMEPRAZOLE. [Suspect]
     Active Substance: OMEPRAZOLE
     Route: 042
  33. PANTOZOL [Suspect]
     Active Substance: PANTOPRAZOLE SODIUM
     Indication: GASTROOESOPHAGEAL REFLUX DISEASE
     Route: 065
  34. OMEPRAZOLE. [Suspect]
     Active Substance: OMEPRAZOLE
     Route: 065
     Dates: start: 2005, end: 200505
  35. OMEPRAZOLE. [Suspect]
     Active Substance: OMEPRAZOLE
     Route: 042
  36. OMEPRAZOLE. [Suspect]
     Active Substance: OMEPRAZOLE
     Route: 042
  37. OMEPRAZOLE. [Suspect]
     Active Substance: OMEPRAZOLE
     Route: 042
  38. OMEPRAZOLE. [Suspect]
     Active Substance: OMEPRAZOLE
     Route: 042
  39. ACIPHEX [Suspect]
     Active Substance: RABEPRAZOLE SODIUM
     Indication: PRODUCT USED FOR UNKNOWN INDICATION
     Route: 065
  40. OMEPRAZOLE. [Suspect]
     Active Substance: OMEPRAZOLE
     Route: 042
  41. OMEPRAZOLE. [Suspect]
     Active Substance: OMEPRAZOLE
     Route: 042
  42. OMEPRAZOLE. [Suspect]
     Active Substance: OMEPRAZOLE
     Route: 042
  43. OMEPRAZOLE. [Suspect]
     Active Substance: OMEPRAZOLE
     Route: 042

REACTIONS (5)
  - Tetany [Unknown]
  - Hypocalcaemia [Recovered/Resolved]
  - Tetanus [Unknown]
  - Hypomagnesaemia [Recovered/Resolved]
  - Hypoparathyroidism secondary [Unknown]

NARRATIVE: CASE EVENT DATE: 2003
